FAERS Safety Report 16211353 (Version 1)
Quarter: 2019Q2

REPORT INFORMATION
  Report Type: Spontaneous
  Country: US (occurrence: US)
  Receive Date: 20190418
  Receipt Date: 20190418
  Transmission Date: 20190711
  Serious: Yes (Hospitalization)
  Sender: FDA-Public Use
  Company Number: US-AUROBINDO-AUR-APL-2019-021065

PATIENT

DRUGS (2)
  1. TRANEXAMIC ACID INJECTION [Suspect]
     Active Substance: TRANEXAMIC ACID
     Dosage: INFUSION OF 3 MILLIGRAM/KILOGRAM PER HOUR
     Route: 040
  2. TRANEXAMIC ACID INJECTION [Suspect]
     Active Substance: TRANEXAMIC ACID
     Indication: CRANIOSYNOSTOSIS
     Dosage: 10 MILLIGRAM/KILOGRAM
     Route: 040

REACTIONS (1)
  - Arterial thrombosis [Unknown]
